FAERS Safety Report 5205636-6 (Version None)
Quarter: 2007Q1

REPORT INFORMATION
  Report Type: 
  Country: None (occurrence: None)
  Receive Date: 20070105
  Receipt Date: 20070105
  Transmission Date: 20070707
  Serious: Yes (Hospitalization)
  Sender: FDA-Public Use
  Company Number: None

PATIENT
  Age: 74 Year
  Sex: Female
  Weight: 80.4 kg

DRUGS (14)
  1. WARFARIN SODIUM [Suspect]
     Indication: THROMBOSIS PROPHYLAXIS
     Dosage: 2 MG PO DAILY
     Route: 048
     Dates: start: 20060703, end: 20060707
  2. SPIRONOLACTONE [Concomitant]
  3. FOLIC ACID [Concomitant]
  4. LEVOTHYROXINE SODIUM [Concomitant]
  5. FUROSEMIDE [Concomitant]
  6. SIMVASTATIN [Concomitant]
  7. SOTALOL HYDROCHLORIDE [Concomitant]
  8. INSULIN GLARGINE [Concomitant]
  9. REGULAR INSULIN [Concomitant]
  10. SERTRALINE [Concomitant]
  11. FERROUS SULFATE TAB [Concomitant]
  12. MULTI-VITAMIN [Concomitant]
  13. SENNA [Concomitant]
  14. METOLAZONE [Concomitant]

REACTIONS (5)
  - EPISTAXIS [None]
  - ILL-DEFINED DISORDER [None]
  - INCORRECT DOSE ADMINISTERED [None]
  - INTERNATIONAL NORMALISED RATIO INCREASED [None]
  - RECTAL HAEMORRHAGE [None]
